FAERS Safety Report 10554031 (Version 1)
Quarter: 2014Q4

REPORT INFORMATION
  Report Type: Spontaneous
  Country: US (occurrence: None)
  Receive Date: 20141028
  Receipt Date: 20141028
  Transmission Date: 20150529
  Serious: Yes (Hospitalization)
  Sender: FDA-Public Use
  Company Number: 201410064

PATIENT
  Age: 61 Year
  Sex: Male

DRUGS (2)
  1. ANDROGEL [Suspect]
     Active Substance: TESTOSTERONE
     Indication: BLOOD TESTOSTERONE DECREASED
     Route: 061
     Dates: start: 20080217, end: 200809
  2. TESTIM [Suspect]
     Active Substance: TESTOSTERONE
     Indication: BLOOD TESTOSTERONE DECREASED
     Route: 062
     Dates: start: 20081017, end: 201309

REACTIONS (5)
  - Economic problem [None]
  - Cardiac disorder [None]
  - Anhedonia [None]
  - Chest pain [None]
  - Fear [None]

NARRATIVE: CASE EVENT DATE: 20110421
